FAERS Safety Report 8105909 (Version 5)
Quarter: 2013Q3

REPORT INFORMATION
  Report Type: Report from Study
  Country: DE (occurrence: DE)
  Receive Date: 20110825
  Receipt Date: 20130828
  Transmission Date: 20140515
  Serious: Yes (Hospitalization, Other)
  Sender: FDA-Public Use
  Company Number: DE-UCBSA-039167

PATIENT
  Sex: Female
  Weight: 72 kg

DRUGS (12)
  1. CERTOLIZUMAB PEGOL [Suspect]
     Indication: RHEUMATOID ARTHRITIS
     Dosage: NO. OF DOSES:2
     Route: 058
     Dates: start: 20110511, end: 20110607
  2. CERTOLIZUMAB PEGOL [Suspect]
     Indication: RHEUMATOID ARTHRITIS
     Dosage: NO. OF DOSES:3
     Route: 058
     Dates: start: 20110413, end: 20110511
  3. PREDNISOLONE [Concomitant]
     Indication: RHEUMATOID ARTHRITIS
  4. PREDNISOLONE [Concomitant]
     Indication: RHEUMATOID ARTHRITIS
     Dates: start: 20110509, end: 20110606
  5. PREDNISOLONE [Concomitant]
     Indication: RHEUMATOID ARTHRITIS
     Dates: start: 20110607
  6. PREDNISOLONE [Concomitant]
     Indication: RHEUMATOID ARTHRITIS
  7. VOLTAREN RESINAT [Concomitant]
     Indication: RHEUMATOID ARTHRITIS
     Dosage: 75 MG ,PRN (AS NEEDED)
  8. VOLTAREN RESINAT [Concomitant]
     Indication: RHEUMATOID ARTHRITIS
     Dates: start: 201105
  9. OLMETEC [Concomitant]
     Indication: HYPERTENSION
  10. IDEOS [Concomitant]
     Indication: VITAMIN D DEFICIENCY
     Dosage: 400 IE
  11. IDEOS [Concomitant]
     Indication: OSTEOPOROSIS
     Dosage: 400 IE
  12. TETANUS VACC [Concomitant]
     Dates: start: 20110506

REACTIONS (3)
  - Erythema nodosum [Recovered/Resolved]
  - Rash [Recovered/Resolved]
  - Contusion [Recovered/Resolved]
